FAERS Safety Report 8477586-3 (Version None)
Quarter: 2012Q2

REPORT INFORMATION
  Report Type: 
  Country: None (occurrence: None)
  Receive Date: 20120629
  Receipt Date: 20120626
  Transmission Date: 20120825
  Serious: Yes (Death, Other)
  Sender: FDA-Public Use
  Company Number: AU-B.I. PHARMACEUTICALS,INC./RIDGEFIELD-2012-AU-01113AU

PATIENT
  Sex: Female
  Weight: 88 kg

DRUGS (4)
  1. OXYGEN [Concomitant]
     Dosage: 3 L
  2. PRADAXA [Suspect]
     Indication: CEREBROVASCULAR ACCIDENT PROPHYLAXIS
     Dates: start: 20110615
  3. PRADAXA [Suspect]
     Indication: ATRIAL FIBRILLATION
  4. PROTON PUMP INHIBITOR [Concomitant]

REACTIONS (5)
  - OEDEMA PERIPHERAL [None]
  - ORTHOPNOEA [None]
  - CARDIAC ARREST [None]
  - CHRONIC OBSTRUCTIVE PULMONARY DISEASE [None]
  - CARDIAC FAILURE CONGESTIVE [None]
